FAERS Safety Report 7339851-2 (Version None)
Quarter: 2011Q1

REPORT INFORMATION
  Report Type: 
  Country: None (occurrence: None)
  Receive Date: 20110309
  Receipt Date: 20110222
  Transmission Date: 20110831
  Serious: Yes (Death)
  Sender: FDA-Public Use
  Company Number: US-RANBAXY-2011US-42645

PATIENT
  Age: 4 Year
  Sex: Female

DRUGS (1)
  1. METFORMIN HYDROCHLORIDE [Suspect]
     Indication: PRODUCT USED FOR UNKNOWN INDICATION
     Dosage: UNK, UNK
     Route: 048

REACTIONS (8)
  - BRADYCARDIA [None]
  - TROPONIN INCREASED [None]
  - VOMITING [None]
  - ACIDOSIS [None]
  - HYPOTENSION [None]
  - ANURIA [None]
  - HAEMATEMESIS [None]
  - ACCIDENTAL OVERDOSE [None]
